FAERS Safety Report 20571783 (Version 5)
Quarter: 2022Q3

REPORT INFORMATION
  Report Type: Spontaneous
  Country: DE (occurrence: DE)
  Receive Date: 20220309
  Receipt Date: 20220704
  Transmission Date: 20221027
  Serious: Yes (Hospitalization, Other)
  Sender: FDA-Public Use
  Company Number: DE-NOVARTISPH-NVSC2022DE050092

PATIENT
  Age: 66 Year
  Sex: Male
  Weight: 69.2 kg

DRUGS (27)
  1. CARBOPLATIN [Suspect]
     Active Substance: CARBOPLATIN
     Indication: Non-small cell lung cancer
     Dosage: 394 MG  (DAY 1 AND DAY 22)
     Route: 042
     Dates: start: 20210601
  2. OPDIVO [Suspect]
     Active Substance: NIVOLUMAB
     Indication: Non-small cell lung cancer
     Dosage: 360 MG (DAY 1, REPEAT DAY 22)
     Route: 042
     Dates: start: 20210601
  3. YERVOY [Suspect]
     Active Substance: IPILIMUMAB
     Indication: Non-small cell lung cancer
     Dosage: 78 MG (DAY1, REPEAT WEEK 6)
     Route: 042
     Dates: start: 20210601, end: 20220201
  4. ASPIRIN [Concomitant]
     Active Substance: ASPIRIN
     Indication: Product used for unknown indication
     Dosage: UNK
     Route: 065
     Dates: start: 20100101
  5. CALCIUMGLUCONAT [Concomitant]
     Indication: Product used for unknown indication
     Dosage: UNK
     Route: 065
     Dates: start: 20220207, end: 20220218
  6. SODIUM CHLORIDE [Concomitant]
     Active Substance: SODIUM CHLORIDE
     Indication: Product used for unknown indication
     Dosage: UNK
     Route: 065
     Dates: start: 20220207, end: 20220208
  7. TAZOBACTAM [Concomitant]
     Active Substance: TAZOBACTAM
     Indication: Product used for unknown indication
     Dosage: UNK
     Route: 065
     Dates: start: 20220209, end: 20220217
  8. ETHOXAZORUTOSIDE\SODIUM ACETATE\SODIUM CHLORIDE\SORBITOL [Concomitant]
     Active Substance: ETHOXAZORUTOSIDE\SODIUM ACETATE\SODIUM CHLORIDE\SORBITOL
     Indication: Product used for unknown indication
     Dosage: UNK
     Route: 065
     Dates: start: 20220209, end: 20220209
  9. ETHOXAZORUTOSIDE\SODIUM ACETATE\SODIUM CHLORIDE\SORBITOL [Concomitant]
     Active Substance: ETHOXAZORUTOSIDE\SODIUM ACETATE\SODIUM CHLORIDE\SORBITOL
     Dosage: UNK
     Route: 065
     Dates: start: 20220210, end: 20220210
  10. ETHOXAZORUTOSIDE\SODIUM ACETATE\SODIUM CHLORIDE\SORBITOL [Concomitant]
     Active Substance: ETHOXAZORUTOSIDE\SODIUM ACETATE\SODIUM CHLORIDE\SORBITOL
     Dosage: UNK
     Route: 065
     Dates: start: 20220211, end: 20220212
  11. ETHOXAZORUTOSIDE\SODIUM ACETATE\SODIUM CHLORIDE\SORBITOL [Concomitant]
     Active Substance: ETHOXAZORUTOSIDE\SODIUM ACETATE\SODIUM CHLORIDE\SORBITOL
     Dosage: UNK
     Route: 065
     Dates: start: 20220213, end: 20220215
  12. ETHOXAZORUTOSIDE\SODIUM ACETATE\SODIUM CHLORIDE\SORBITOL [Concomitant]
     Active Substance: ETHOXAZORUTOSIDE\SODIUM ACETATE\SODIUM CHLORIDE\SORBITOL
     Dosage: UNK
     Route: 065
     Dates: start: 20220216, end: 20220218
  13. FOLIC ACID [Concomitant]
     Active Substance: FOLIC ACID
     Indication: Product used for unknown indication
     Dosage: UNK
     Route: 065
     Dates: start: 20220210
  14. CALCIUM CHLORIDE [Concomitant]
     Active Substance: CALCIUM CHLORIDE
     Indication: Product used for unknown indication
     Dosage: UNK
     Route: 065
     Dates: start: 20220218, end: 20220218
  15. CALCIUM CHLORIDE [Concomitant]
     Active Substance: CALCIUM CHLORIDE
     Dosage: UNK
     Route: 065
     Dates: start: 20220217, end: 20220217
  16. CALCIUM CHLORIDE [Concomitant]
     Active Substance: CALCIUM CHLORIDE
     Dosage: UNK
     Route: 065
     Dates: start: 20220207, end: 20220216
  17. SIMVASTATIN [Concomitant]
     Active Substance: SIMVASTATIN
     Indication: Product used for unknown indication
     Dosage: UNK
     Route: 065
     Dates: start: 20100101, end: 20220328
  18. PANTOPRAZOLE [Concomitant]
     Active Substance: PANTOPRAZOLE
     Indication: Product used for unknown indication
     Dosage: UNK
     Route: 065
     Dates: start: 20220210
  19. PANTOPRAZOLE [Concomitant]
     Active Substance: PANTOPRAZOLE
     Dosage: UNK
     Route: 065
     Dates: start: 20220207, end: 20220209
  20. CERTOPARIN SODIUM [Concomitant]
     Active Substance: CERTOPARIN SODIUM
     Indication: Product used for unknown indication
     Dosage: UNK
     Route: 065
     Dates: start: 20220207, end: 20220218
  21. CARVEDILOL [Concomitant]
     Active Substance: CARVEDILOL
     Indication: Product used for unknown indication
     Dosage: UNK
     Route: 065
     Dates: start: 20100101
  22. DEXAMETHASONE [Concomitant]
     Active Substance: DEXAMETHASONE
     Indication: Product used for unknown indication
     Dosage: UNK
     Route: 065
     Dates: start: 20220207
  23. TOUJEO [Concomitant]
     Active Substance: INSULIN GLARGINE
     Indication: Product used for unknown indication
     Dosage: UNK
     Route: 065
     Dates: start: 20060101
  24. NOVORAPID [Concomitant]
     Active Substance: INSULIN ASPART
     Indication: Product used for unknown indication
     Dosage: UNK
     Route: 065
     Dates: start: 20060101
  25. ANIDULAFUNGIN [Concomitant]
     Active Substance: ANIDULAFUNGIN
     Indication: Product used for unknown indication
     Dosage: UNK
     Route: 065
     Dates: start: 20220207, end: 20220214
  26. PANTOZOL [Concomitant]
     Active Substance: PANTOPRAZOLE SODIUM
     Indication: Product used for unknown indication
     Dosage: UNK
     Route: 065
     Dates: start: 20220207, end: 20220209
  27. PANTOZOL [Concomitant]
     Active Substance: PANTOPRAZOLE SODIUM
     Dosage: UNK
     Route: 065
     Dates: start: 20220210

REACTIONS (3)
  - Acute kidney injury [Recovered/Resolved]
  - Vomiting [Recovered/Resolved]
  - Diarrhoea [Recovered/Resolved]

NARRATIVE: CASE EVENT DATE: 20220129
